FAERS Safety Report 11942139 (Version 1)
Quarter: 2016Q1

REPORT INFORMATION
  Report Type: Spontaneous
  Country: US (occurrence: US)
  Receive Date: 20160125
  Receipt Date: 20160125
  Transmission Date: 20160526
  Serious: Yes (Other)
  Sender: FDA-Public Use
  Company Number: US-ROCHE-ITM201506IM017231

PATIENT
  Sex: Male
  Weight: 90.8 kg

DRUGS (1)
  1. ESBRIET [Suspect]
     Active Substance: PIRFENIDONE
     Indication: IDIOPATHIC PULMONARY FIBROSIS
     Dosage: 3 CAPSULES THRICE A DAY
     Route: 048
     Dates: start: 20150414

REACTIONS (10)
  - Cough [Unknown]
  - Hypoaesthesia [Unknown]
  - Pneumonia [Unknown]
  - Infectious colitis [Unknown]
  - Syncope [Unknown]
  - Sunburn [Unknown]
  - Pain [Unknown]
  - Hypotension [Unknown]
  - Rhinorrhoea [Unknown]
  - Dizziness [Unknown]
